FAERS Safety Report 4989801-9 (Version None)
Quarter: 2006Q2

REPORT INFORMATION
  Report Type: 
  Country: None (occurrence: None)
  Receive Date: 20060503
  Receipt Date: 20060327
  Transmission Date: 20061013
  Serious: Yes (Disabling)
  Sender: FDA-Public Use
  Company Number: JP-SP-2006-00775

PATIENT
  Age: 62 Year
  Sex: Male

DRUGS (2)
  1. IMMUCYST [Suspect]
     Indication: BLADDER CANCER
     Route: 043
     Dates: start: 20050519, end: 20050602
  2. IMMUCYST [Suspect]
     Route: 043
     Dates: start: 20050519, end: 20050602

REACTIONS (3)
  - CONTRACTED BLADDER [None]
  - CYSTITIS [None]
  - POLLAKIURIA [None]
